FAERS Safety Report 9229627 (Version 1)
Quarter: 2013Q2

REPORT INFORMATION
  Report Type: Spontaneous
  Country: BR (occurrence: BR)
  Receive Date: 20130414
  Receipt Date: 20130414
  Transmission Date: 20140414
  Serious: Yes (Death)
  Sender: FDA-Public Use
  Company Number: BR-BRISTOL-MYERS SQUIBB COMPANY-18758896

PATIENT
  Sex: Male

DRUGS (1)
  1. APROVEL TABS 300 MG [Suspect]

REACTIONS (1)
  - Death [Fatal]
